FAERS Safety Report 11662858 (Version 1)
Quarter: 2015Q4

REPORT INFORMATION
  Report Type: Spontaneous
  Country: US (occurrence: US)
  Receive Date: 20151027
  Receipt Date: 20151027
  Transmission Date: 20160304
  Serious: No
  Sender: FDA-Public Use
  Company Number: US-MEDA-2014020138

PATIENT
  Sex: Female

DRUGS (13)
  1. DYMISTA [Suspect]
     Active Substance: AZELASTINE HYDROCHLORIDE\FLUTICASONE PROPIONATE
     Indication: MULTIPLE ALLERGIES
     Dates: start: 20140120, end: 20140208
  2. NAPROXEN. [Concomitant]
     Active Substance: NAPROXEN
     Indication: CHRONIC FATIGUE SYNDROME
  3. SOMA [Concomitant]
     Active Substance: CARISOPRODOL
  4. EVENING PRIMROSE OIL [Concomitant]
     Active Substance: EVENING PRIMROSE OIL
  5. VITAMIN B6 [Concomitant]
     Active Substance: PYRIDOXINE HYDROCHLORIDE
  6. ESTROVEN [Concomitant]
     Active Substance: DIETARY SUPPLEMENT
  7. GLUCOSAMINE CHONDROITIN [Concomitant]
     Active Substance: CHONDROITIN SULFATE (BOVINE)\GLUCOSAMINE HYDROCHLORIDE
  8. ATIVAN [Concomitant]
     Active Substance: LORAZEPAM
  9. NAPROXEN. [Concomitant]
     Active Substance: NAPROXEN
     Indication: FIBROMYALGIA
  10. VITAMIN B12 [Concomitant]
     Active Substance: CYANOCOBALAMIN
  11. OMEPRAZOLE. [Concomitant]
     Active Substance: OMEPRAZOLE
  12. SINGULAIR [Concomitant]
     Active Substance: MONTELUKAST SODIUM
  13. LYSINE [Concomitant]
     Active Substance: LYSINE

REACTIONS (7)
  - Chapped lips [Recovering/Resolving]
  - Oropharyngeal pain [Unknown]
  - Lip pain [Recovering/Resolving]
  - Lip haemorrhage [Recovering/Resolving]
  - Cough [Unknown]
  - Lip exfoliation [Recovering/Resolving]
  - Lip dry [Recovering/Resolving]

NARRATIVE: CASE EVENT DATE: 201401
